FAERS Safety Report 7939148-3 (Version None)
Quarter: 2011Q4

REPORT INFORMATION
  Report Type: 
  Country: None (occurrence: None)
  Receive Date: 20111124
  Receipt Date: 20111110
  Transmission Date: 20120403
  Serious: Yes (Other)
  Sender: FDA-Public Use
  Company Number: DE-ROCHE-1014021

PATIENT
  Sex: Female
  Weight: 66 kg

DRUGS (7)
  1. XOLAIR [Suspect]
     Indication: ASTHMA
     Route: 058
     Dates: start: 20100830, end: 20100830
  2. ALVESCO [Concomitant]
  3. XOLAIR [Suspect]
     Route: 058
     Dates: start: 20100913, end: 20100913
  4. XOLAIR [Suspect]
     Route: 058
     Dates: start: 20100927, end: 20100927
  5. THEOPHYLLINE [Concomitant]
  6. SYMBICORT [Concomitant]
  7. ALBUTEROL SULFATE AUTOHALER [Concomitant]

REACTIONS (4)
  - DIZZINESS [None]
  - HEADACHE [None]
  - EXCESSIVE EYE BLINKING [None]
  - VERTIGO [None]
